FAERS Safety Report 7527780-0 (Version None)
Quarter: 2011Q2

REPORT INFORMATION
  Report Type: 
  Country: None (occurrence: None)
  Receive Date: 20110527
  Receipt Date: 20110516
  Transmission Date: 20111010
  Serious: Yes (Other)
  Sender: FDA-Public Use
  Company Number: DSJ-2011-09681

PATIENT
  Age: 68 Year
  Sex: Female

DRUGS (3)
  1. BENICAR HCT [Suspect]
     Indication: HYPERTENSION
     Dosage: SEE IMAGE
     Route: 048
     Dates: start: 20100101, end: 20110514
  2. BENICAR HCT [Suspect]
     Indication: HYPERTENSION
     Dosage: SEE IMAGE
     Route: 048
     Dates: start: 20110515, end: 20110515
  3. BENICAR HCT [Suspect]
     Indication: HYPERTENSION
     Dosage: SEE IMAGE
     Route: 048
     Dates: start: 20110516

REACTIONS (7)
  - ANGINA PECTORIS [None]
  - BRADYCARDIA [None]
  - OVERDOSE [None]
  - UTERINE POLYP [None]
  - MALAISE [None]
  - SYNCOPE [None]
  - DRUG INEFFECTIVE [None]
